FAERS Safety Report 10979263 (Version 1)
Quarter: 2015Q2

REPORT INFORMATION
  Report Type: Spontaneous
  Country: BR (occurrence: BR)
  Receive Date: 20150402
  Receipt Date: 20150402
  Transmission Date: 20150821
  Serious: Yes (Hospitalization, Other)
  Sender: FDA-Public Use
  Company Number: BR-SA-2015SA040736

PATIENT
  Age: 76 Year
  Sex: Male

DRUGS (5)
  1. ALENIA [Suspect]
     Active Substance: BUDESONIDE\FORMOTEROL FUMARATE
     Indication: ASTHMA
     Route: 055
     Dates: start: 2003, end: 201501
  2. SIMVASTATIN. [Concomitant]
     Active Substance: SIMVASTATIN
     Indication: POOR PERIPHERAL CIRCULATION
     Dosage: STRENGTH: 20 MG
     Route: 048
     Dates: start: 2009
  3. TAMSULOSIN [Concomitant]
     Active Substance: TAMSULOSIN
     Dosage: STRENGTH: 0.4 MG
     Dates: start: 2013
  4. SINGULAIR [Concomitant]
     Active Substance: MONTELUKAST SODIUM
     Indication: ASTHMA
     Route: 048
     Dates: start: 2009
  5. ELOXATIN [Suspect]
     Active Substance: OXALIPLATIN
     Indication: PROSTATIC DISORDER
     Route: 065
     Dates: start: 2007, end: 2013

REACTIONS (3)
  - Hypertension [Recovered/Resolved]
  - Cataract [Recovered/Resolved]
  - Diabetes mellitus [Recovered/Resolved]

NARRATIVE: CASE EVENT DATE: 2012
